FAERS Safety Report 14302924 (Version 2)
Quarter: 2017Q4

REPORT INFORMATION
  Report Type: Spontaneous
  Country: US (occurrence: US)
  Receive Date: 20171219
  Receipt Date: 20171228
  Transmission Date: 20180321
  Serious: No
  Sender: FDA-Public Use
  Company Number: US-BAYER-2017-244200

PATIENT
  Age: 69 Year
  Sex: Female
  Weight: 90.7 kg

DRUGS (1)
  1. CLARITIN-D 12 HOUR [Suspect]
     Active Substance: LORATADINE\PSEUDOEPHEDRINE SULFATE
     Dosage: UNK
     Route: 048

REACTIONS (5)
  - Product package associated injury [Recovering/Resolving]
  - Pain [Recovering/Resolving]
  - Localised infection [Recovering/Resolving]
  - Insomnia [Recovering/Resolving]
  - Product use in unapproved indication [None]
